FAERS Safety Report 6588063-9 (Version None)
Quarter: 2010Q1

REPORT INFORMATION
  Report Type: 
  Country: None (occurrence: None)
  Receive Date: 20100218
  Receipt Date: 20100201
  Transmission Date: 20100710
  Serious: Yes (Other)
  Sender: FDA-Public Use
  Company Number: PHHY2010BR05845

PATIENT
  Sex: Female

DRUGS (6)
  1. DIOVAN [Suspect]
     Indication: HYPERTENSION
     Dosage: 160 MG, ONCE A DAY (IN THE MORNING)
     Route: 048
  2. HYDROCHLOROTHIAZIDE [Concomitant]
     Dosage: IN THE MORNING
  3. AMLODIPINE [Concomitant]
     Dosage: 5 MG, AT LUNCH
  4. DAFLON 500 [Concomitant]
     Indication: VARICOSE VEIN
     Dosage: 500 MG, UNK
  5. ARTROLIVE [Concomitant]
     Indication: BONE DISORDER
     Dosage: UNK
  6. SYNTHROID [Concomitant]
     Indication: THYROID DISORDER
     Dosage: UNK

REACTIONS (1)
  - BLOOD PRESSURE INADEQUATELY CONTROLLED [None]
